FAERS Safety Report 16443099 (Version 2)
Quarter: 2019Q2

REPORT INFORMATION
  Report Type: Spontaneous
  Country: DE (occurrence: DE)
  Receive Date: 20190617
  Receipt Date: 20190620
  Transmission Date: 20190711
  Serious: Yes (Other)
  Sender: FDA-Public Use
  Company Number: DE-009507513-1906DEU004695

PATIENT
  Sex: Female

DRUGS (1)
  1. KEYTRUDA [Suspect]
     Active Substance: PEMBROLIZUMAB

REACTIONS (5)
  - Left ventricular dysfunction [Unknown]
  - Ventricular tachycardia [Unknown]
  - Cardiac failure [Unknown]
  - Congestive cardiomyopathy [Unknown]
  - Autoimmune myocarditis [Unknown]
